FAERS Safety Report 4654548-5 (Version None)
Quarter: 2005Q2

REPORT INFORMATION
  Report Type: 
  Country: None (occurrence: None)
  Receive Date: 20050504
  Receipt Date: 20050504
  Transmission Date: 20051028
  Serious: No
  Sender: FDA-Public Use
  Company Number: None

PATIENT
  Sex: Female
  Weight: 78.5 kg

DRUGS (2)
  1. CISPLATIN [Suspect]
     Dosage: 50 MG/M2 IV OVER 60 MIN, DAYS 1,8, 29 AND 36
     Route: 042
  2. ETOPOSIDE [Suspect]
     Dosage: 50 MG/M2 IIV OVER 60 MIN, DAYS 1-5 AND 29-33
     Route: 042

REACTIONS (7)
  - DIARRHOEA [None]
  - EATING DISORDER [None]
  - HYPOXIA [None]
  - MUCOSAL DRYNESS [None]
  - NAUSEA [None]
  - RETCHING [None]
  - SKIN TURGOR DECREASED [None]
